FAERS Safety Report 4492191-1 (Version None)
Quarter: 2004Q4

REPORT INFORMATION
  Report Type: 
  Country: None (occurrence: None)
  Receive Date: 20041101
  Receipt Date: 20041018
  Transmission Date: 20050328
  Serious: Yes (Life-Threatening)
  Sender: FDA-Public Use
  Company Number: 238168

PATIENT
  Age: 56 Year
  Sex: Male
  Weight: 116.3 kg

DRUGS (8)
  1. NOVOLOG MIX 70/30 [Suspect]
     Dosage: SEE IMAGE
     Route: 058
     Dates: start: 20040701, end: 20040713
  2. NOVOLOG MIX 70/30 [Suspect]
     Dosage: SEE IMAGE
     Route: 058
     Dates: start: 20040714
  3. NOVOLOG MIX 70/30 [Suspect]
     Dosage: SEE IMAGE
     Route: 058
     Dates: start: 20040715
  4. METFORMIN [Concomitant]
  5. ATENOLOL [Concomitant]
  6. ACCUPRIL [Concomitant]
  7. ACETYLSALICYLIC ACID SRT [Concomitant]
  8. ZOCOR [Concomitant]

REACTIONS (6)
  - CONTUSION [None]
  - DIZZINESS [None]
  - EXCORIATION [None]
  - HYPOGLYCAEMIA [None]
  - LACERATION [None]
  - ROAD TRAFFIC ACCIDENT [None]
